FAERS Safety Report 6763851-4 (Version None)
Quarter: 2010Q2

REPORT INFORMATION
  Report Type: 
  Country: None (occurrence: None)
  Receive Date: 20100610
  Receipt Date: 20100601
  Transmission Date: 20101027
  Serious: Yes (Other)
  Sender: FDA-Public Use
  Company Number: JP-PFIZER INC-2010068798

PATIENT
  Age: 81 Year
  Sex: Female

DRUGS (11)
  1. ZITHROMAC SR [Suspect]
     Indication: BRONCHITIS
     Dosage: 2 G, SINGLE
     Route: 048
     Dates: start: 20100426
  2. ZITHROMAC SR [Suspect]
     Indication: PYREXIA
  3. ALOSENN [Concomitant]
     Route: 048
  4. ADETPHOS [Concomitant]
     Route: 048
  5. LASIX [Concomitant]
  6. PREDNISOLONE [Concomitant]
  7. MICTONORM [Concomitant]
  8. DIAZEPAM [Concomitant]
  9. ARICEPT [Concomitant]
  10. MICARDIS [Concomitant]
  11. AMLODIN [Concomitant]

REACTIONS (1)
  - ALTERED STATE OF CONSCIOUSNESS [None]
